FAERS Safety Report 5089947-3 (Version None)
Quarter: 2006Q3

REPORT INFORMATION
  Report Type: 
  Country: None (occurrence: None)
  Receive Date: 20060823
  Receipt Date: 20060512
  Transmission Date: 20061208
  Serious: Yes (Death)
  Sender: FDA-Public Use
  Company Number: AE-506-146

PATIENT
  Age: 72 Year
  Sex: Male

DRUGS (3)
  1. LIDODERM [Suspect]
     Indication: BACK PAIN
     Dosage: 1 PATCH A DAY
     Dates: start: 20051201
  2. LIDODERM [Suspect]
     Indication: INTERVERTEBRAL DISC DISORDER
     Dosage: 1 PATCH A DAY
     Dates: start: 20051201
  3. MORPHINE [Concomitant]

REACTIONS (1)
  - DRUG INEFFECTIVE [None]
